FAERS Safety Report 14997730 (Version 1)
Quarter: 2018Q2

REPORT INFORMATION
  Report Type: Spontaneous
  Country: US (occurrence: US)
  Receive Date: 20180520
  Receipt Date: 20180520
  Transmission Date: 20180711
  Serious: Yes (Death)
  Sender: FDA-Public Use
  Company Number: None

PATIENT
  Age: 10 Year
  Sex: Female

DRUGS (1)
  1. NUTROPIN AQ NUSPIN 20 [Suspect]
     Active Substance: SOMATROPIN

REACTIONS (1)
  - Death [None]

NARRATIVE: CASE EVENT DATE: 20180520
